FAERS Safety Report 23090878 (Version 1)
Quarter: 2023Q4

REPORT INFORMATION
  Report Type: Spontaneous
  Country: JP (occurrence: JP)
  Receive Date: 20231020
  Receipt Date: 20231020
  Transmission Date: 20240110
  Serious: Yes (Other)
  Sender: FDA-Public Use
  Company Number: JP-SUN PHARMACEUTICAL INDUSTRIES LTD-2023R1-414151

PATIENT
  Age: 58 Year
  Sex: Female

DRUGS (1)
  1. LITHIUM [Suspect]
     Active Substance: LITHIUM
     Indication: Neuroleptic malignant syndrome
     Dosage: 800 MILLIGRAM, BID
     Route: 065

REACTIONS (4)
  - Toxicity to various agents [Unknown]
  - Osmotic demyelination syndrome [Unknown]
  - Bacteraemia [Unknown]
  - Acute kidney injury [Unknown]
